FAERS Safety Report 9463078 (Version 4)
Quarter: 2013Q4

REPORT INFORMATION
  Report Type: Spontaneous
  Country: IT (occurrence: IT)
  Receive Date: 20130816
  Receipt Date: 20131008
  Transmission Date: 20140711
  Serious: Yes (Life-Threatening)
  Sender: FDA-Public Use
  Company Number: IT-B.I. PHARMACEUTICALS,INC./RIDGEFIELD-2013-IT-00450IT

PATIENT
  Age: 84 Year
  Sex: Male

DRUGS (9)
  1. PRADAXA [Suspect]
     Indication: ATRIAL FIBRILLATION
     Dosage: 220 MG
     Route: 048
     Dates: start: 20130802, end: 20130810
  2. BISOPROLOL FUMARATE [Concomitant]
  3. LASIX [Concomitant]
  4. ENAPREN [Concomitant]
  5. PROSCAR [Concomitant]
  6. LANOXIN [Concomitant]
  7. CARDURA [Concomitant]
  8. NITRODERM [Concomitant]
     Dosage: 10 MG
     Route: 062
  9. LEXOTAN [Concomitant]
     Route: 048

REACTIONS (4)
  - International normalised ratio increased [Recovered/Resolved]
  - Activated partial thromboplastin time prolonged [Recovered/Resolved]
  - Haematuria [Recovered/Resolved]
  - Conjunctival haemorrhage [Recovered/Resolved]
